FAERS Safety Report 25587133 (Version 1)
Quarter: 2025Q3

REPORT INFORMATION
  Report Type: Spontaneous
  Country: EU (occurrence: EU)
  Receive Date: 20250721
  Receipt Date: 20250721
  Transmission Date: 20251020
  Serious: Yes (Other)
  Sender: ANI
  Company Number: EU-ANIPHARMA-2025-FR-000102

PATIENT
  Age: 93 Year
  Sex: Female
  Weight: 53 kg

DRUGS (7)
  1. ANASTROZOLE [Suspect]
     Active Substance: ANASTROZOLE
     Indication: Medication error
     Route: 048
     Dates: start: 20250503, end: 20250503
  2. ALDACTONE [Suspect]
     Active Substance: SPIRONOLACTONE
     Route: 048
     Dates: start: 20250503, end: 20250503
  3. BISOPROLOL [Suspect]
     Active Substance: BISOPROLOL
     Route: 048
     Dates: start: 20250503, end: 20250503
  4. CYAMEMAZINE [Suspect]
     Active Substance: CYAMEMAZINE
     Route: 048
     Dates: start: 20250503, end: 20250503
  5. ELIQUIS [Suspect]
     Active Substance: APIXABAN
     Route: 048
     Dates: start: 20250503, end: 20250503
  6. FUROSEMIDE [Suspect]
     Active Substance: FUROSEMIDE
     Dates: start: 20250503, end: 20250503
  7. LORAZEPAM [Suspect]
     Active Substance: LORAZEPAM
     Route: 048

REACTIONS (4)
  - Bradycardia [Unknown]
  - Hypotension [Unknown]
  - Product administration error [Unknown]
  - Wrong patient received product [Recovered/Resolved]

NARRATIVE: CASE EVENT DATE: 20250503
